FAERS Safety Report 8890264 (Version 2)
Quarter: 2013Q1

REPORT INFORMATION
  Report Type: Spontaneous
  Country: US (occurrence: US)
  Receive Date: 20121107
  Receipt Date: 20130304
  Transmission Date: 20140127
  Serious: Yes (Hospitalization, Other)
  Sender: FDA-Public Use
  Company Number: US-BAYER-2012-115256

PATIENT
  Age: 38 Year
  Sex: Female
  Weight: 98.87 kg

DRUGS (6)
  1. YAZ [Suspect]
     Indication: CONTRACEPTION
     Dosage: UNK
     Dates: start: 200805, end: 20081001
  2. YAZ [Suspect]
     Indication: PREMENSTRUAL SYNDROME
  3. LEVOTHYROXINE [Concomitant]
     Indication: THYROIDECTOMY
     Dosage: 18 YEARS
  4. LEXAPRO [Concomitant]
  5. METOPROLOL [Concomitant]
     Dosage: UNK
     Dates: start: 2008
  6. DEPO-PROVERA [Concomitant]
     Dosage: UNK
     Dates: start: 2007, end: 2009

REACTIONS (2)
  - Deep vein thrombosis [None]
  - Pulmonary embolism [None]
